FAERS Safety Report 5526270-4 (Version None)
Quarter: 2007Q4

REPORT INFORMATION
  Report Type: 
  Country: None (occurrence: None)
  Receive Date: 20071127
  Receipt Date: 20071116
  Transmission Date: 20080405
  Serious: Yes (Hospitalization)
  Sender: FDA-Public Use
  Company Number: CN-JNJFOC-20071105847

PATIENT
  Sex: Male

DRUGS (2)
  1. ULTRACET [Suspect]
     Indication: PROCEDURAL PAIN
     Route: 048
  2. ANTI-INFLAMMATORY DRUGS [Concomitant]
     Indication: PROCEDURAL PAIN
     Route: 065

REACTIONS (3)
  - DIZZINESS [None]
  - FALL [None]
  - INSOMNIA [None]
